FAERS Safety Report 5197379-2 (Version None)
Quarter: 2007Q1

REPORT INFORMATION
  Report Type: 
  Country: None (occurrence: None)
  Receive Date: 20070103
  Receipt Date: 20061222
  Transmission Date: 20070707
  Serious: Yes (Other)
  Sender: FDA-Public Use
  Company Number: PHBS2006JP19371

PATIENT
  Age: 59 Year
  Sex: Female
  Weight: 41 kg

DRUGS (4)
  1. ZOMETA [Suspect]
     Indication: METASTASES TO BONE
     Dosage: 4 MG, ONCE/SINGLE
     Route: 041
     Dates: start: 20061011, end: 20061011
  2. ARIMIDEX [Concomitant]
     Indication: BREAST CANCER
     Dosage: 1 MG/D
     Route: 048
     Dates: start: 20050920
  3. JUZENTAIHOTO [Concomitant]
     Dosage: 7.5 G/D
     Route: 048
     Dates: start: 20050920
  4. FERROMIA [Concomitant]
     Indication: ANAEMIA
     Dosage: 100 G/D
     Route: 048
     Dates: start: 20050920

REACTIONS (3)
  - OSTEONECROSIS [None]
  - PAIN IN JAW [None]
  - SWELLING [None]
